FAERS Safety Report 22071509 (Version 1)
Quarter: 2023Q1

REPORT INFORMATION
  Report Type: Spontaneous
  Country: JP (occurrence: JP)
  Receive Date: 20230307
  Receipt Date: 20230307
  Transmission Date: 20230417
  Serious: Yes (Other)
  Sender: FDA-Public Use
  Company Number: JP-TEVA-2023-JP-2863403

PATIENT
  Age: 48 Year
  Sex: Female

DRUGS (6)
  1. HYDROCORTISONE [Suspect]
     Active Substance: HYDROCORTISONE
     Indication: Lymphocytic hypophysitis
     Dosage: 10 MILLIGRAM DAILY; ONCE A DAY
     Route: 065
  2. HYDROCORTISONE [Suspect]
     Active Substance: HYDROCORTISONE
     Dosage: 5 MILLIGRAM DAILY; ONCE A DAY
     Route: 065
  3. 1-deamino-8-D-arginine-vasopressin [Concomitant]
     Indication: Diabetes insipidus
     Route: 045
  4. 1-deamino-8-D-arginine-vasopressin [Concomitant]
     Route: 048
  5. LEVOTHYROXINE [Concomitant]
     Active Substance: LEVOTHYROXINE
     Indication: Supplementation therapy
     Route: 065
  6. Recombinant-human-growth-hormone [Concomitant]
     Indication: Growth hormone deficiency
     Route: 065

REACTIONS (2)
  - Diabetes mellitus [Unknown]
  - Obesity [Unknown]
